FAERS Safety Report 6436214-9 (Version None)
Quarter: 2009Q4

REPORT INFORMATION
  Report Type: 
  Country: None (occurrence: None)
  Receive Date: 20091111
  Receipt Date: 20091029
  Transmission Date: 20100525
  Serious: Yes (Hospitalization, Other)
  Sender: FDA-Public Use
  Company Number: US-PFIZER INC-2009291287

PATIENT
  Sex: Female
  Weight: 83.4 kg

DRUGS (1)
  1. DILANTIN-125 [Suspect]
     Indication: CONVULSION PROPHYLAXIS
     Dosage: UNK
     Route: 048
     Dates: end: 20090801

REACTIONS (4)
  - DRUG LEVEL INCREASED [None]
  - FALL [None]
  - OVERDOSE [None]
  - VERTIGO [None]
